FAERS Safety Report 16917724 (Version 1)
Quarter: 2019Q4

REPORT INFORMATION
  Report Type: Spontaneous
  Country: GB (occurrence: GB)
  Receive Date: 20191015
  Receipt Date: 20191015
  Transmission Date: 20200122
  Serious: Yes (Hospitalization)
  Sender: FDA-Public Use
  Company Number: GB-TEVA-2019-GB-1120814

PATIENT
  Age: 91 Year
  Sex: Female
  Weight: 56 kg

DRUGS (15)
  1. CARBOCISTEINE [Concomitant]
     Active Substance: CARBOCYSTEINE
     Dosage: 4 DOSAGE FORM PER DAY
     Dates: start: 20190211
  2. LOPERAMIDE [Concomitant]
     Active Substance: LOPERAMIDE
     Dosage: UP TO 4 X A DAY
     Dates: start: 20190417
  3. METHYLPREDNISOLONE ACETATE. [Concomitant]
     Active Substance: METHYLPREDNISOLONE ACETATE
     Dosage: USE AS DIRECTED
     Dates: start: 20190812, end: 20190813
  4. DUORESP SPIROMAX [Concomitant]
     Active Substance: BUDESONIDE\FORMOTEROL
     Dosage: PUFF (2 DOSAGE FORM PER DAY)
     Dates: start: 20181128
  5. LANSOPRAZOLE. [Suspect]
     Active Substance: LANSOPRAZOLE
     Dosage: 30 MILLIGRAM
     Dates: start: 20190913
  6. FUROSEMIDE. [Concomitant]
     Active Substance: FUROSEMIDE
     Dosage: EACH MORNING (1 DOSAGE FORM)
     Dates: start: 20190812
  7. LEVOTHYROXINE. [Concomitant]
     Active Substance: LEVOTHYROXINE
     Dosage: ONE AND TWO ALTERNATE DAYS
     Dates: start: 20181128
  8. CAPSAICIN. [Concomitant]
     Active Substance: CAPSAICIN
     Indication: PAIN
     Dosage: APPLY (4 DOSAGE FORM PER DAY)
     Dates: start: 20190725, end: 20190804
  9. ACETYLSALICYLIC ACID [Concomitant]
     Active Substance: ASPIRIN
     Dosage: 1 DOSAGE FORM PER DAY
     Dates: start: 20181128
  10. PARACETAMOL [Concomitant]
     Active Substance: ACETAMINOPHEN
     Dosage: 1 OR 2 TO BE TAKEN THREE TIMES A DAY
     Dates: start: 20190624
  11. HYDROXOCOBALAMIN [Concomitant]
     Active Substance: HYDROXOCOBALAMIN
     Dosage: USE AS DIRECTED
     Dates: start: 20190701, end: 20190711
  12. SALBUTAMOL [Concomitant]
     Active Substance: ALBUTEROL
     Dosage: TAKE TWO PUFFS EVERY FOUR HOURS AS NECESSARY (F..
     Dates: start: 20190417
  13. ATORVASTATIN [Concomitant]
     Active Substance: ATORVASTATIN
     Dosage: 1 DOSAGE FORM PER DAY
     Dates: start: 20181128
  14. CANESTEN [Concomitant]
     Active Substance: CLOTRIMAZOLE
     Dosage: APPLY (3 DOSAGE FORMS PER DAY)
     Dates: start: 20190903, end: 20190904
  15. BUDESONIDE. [Concomitant]
     Active Substance: BUDESONIDE
     Dosage: TAKE 1 DAILY FOR 4 WEEKS THEN REDUCING DOSE
     Dates: start: 20190417, end: 20190724

REACTIONS (1)
  - Colitis microscopic [Recovering/Resolving]

NARRATIVE: CASE EVENT DATE: 20190918
